FAERS Safety Report 9657069 (Version 1)
Quarter: 2013Q4

REPORT INFORMATION
  Report Type: Spontaneous
  Country: US (occurrence: US)
  Receive Date: 20131030
  Receipt Date: 20131030
  Transmission Date: 20140711
  Serious: No
  Sender: FDA-Public Use
  Company Number: US-B.I. PHARMACEUTICALS,INC./RIDGEFIELD-2013-BI-33557BP

PATIENT
  Sex: Female
  Weight: 59 kg

DRUGS (6)
  1. MICARDIS [Suspect]
     Indication: HYPERTENSION
     Route: 048
     Dates: start: 1998, end: 201309
  2. MICARDIS [Suspect]
     Dosage: 40 MG
     Route: 048
     Dates: start: 201309
  3. NAPROXIN [Concomitant]
     Indication: ARTHRITIS
     Route: 048
  4. METOPROLOL [Concomitant]
     Route: 048
  5. MAXIDE [Concomitant]
     Route: 048
  6. CALCIUM [Concomitant]
     Route: 048

REACTIONS (3)
  - Skin disorder [Not Recovered/Not Resolved]
  - Hypertension [Not Recovered/Not Resolved]
  - Pruritus [Not Recovered/Not Resolved]
